FAERS Safety Report 14934096 (Version 1)
Quarter: 2018Q2

REPORT INFORMATION
  Report Type: Spontaneous
  Country: US (occurrence: US)
  Receive Date: 20180505
  Receipt Date: 20180505
  Transmission Date: 20180711
  Serious: Yes (Disabling)
  Sender: FDA-Public Use
  Company Number: None

PATIENT
  Age: 51 Year
  Sex: Female
  Weight: 69.75 kg

DRUGS (1)
  1. INJECTAFER [Suspect]
     Active Substance: FERRIC CARBOXYMALTOSE
     Indication: ANAEMIA
     Dosage: ?          OTHER FREQUENCY:TWO DOSES ONE WEEK;?
     Route: 042
     Dates: start: 20170213, end: 20170220

REACTIONS (16)
  - Frustration tolerance decreased [None]
  - Pruritus [None]
  - Bone pain [None]
  - Feeling abnormal [None]
  - Gait disturbance [None]
  - Hypoaesthesia [None]
  - Rash [None]
  - Feeling hot [None]
  - Malaise [None]
  - Peripheral swelling [None]
  - Quality of life decreased [None]
  - Paraesthesia [None]
  - Infusion related reaction [None]
  - Joint swelling [None]
  - Impaired self-care [None]
  - Toxicity to various agents [None]

NARRATIVE: CASE EVENT DATE: 20170220
